FAERS Safety Report 8447483-8 (Version None)
Quarter: 2012Q2

REPORT INFORMATION
  Report Type: 
  Country: None (occurrence: None)
  Receive Date: 20120619
  Receipt Date: 20120612
  Transmission Date: 20120825
  Serious: Yes (Other)
  Sender: FDA-Public Use
  Company Number: US-PFIZER INC-2011173124

PATIENT
  Sex: Female
  Weight: 81.633 kg

DRUGS (5)
  1. MELOXICAM [Concomitant]
     Dosage: 7.5 MG, UNK
  2. PERCOCET [Concomitant]
     Indication: BACK PAIN
     Dosage: 5/325 MG, 2X/DAY
  3. METHOCARBAMOL [Concomitant]
     Dosage: 750 MG, 1/2 TO 1 THREE TIMES A DAY
  4. LYRICA [Suspect]
     Indication: NERVE INJURY
     Dosage: 300 MG, 2X/DAY
     Route: 048
     Dates: start: 20070801
  5. IBUPROFEN [Concomitant]
     Dosage: UNK

REACTIONS (3)
  - PAIN [None]
  - WITHDRAWAL SYNDROME [None]
  - INFLUENZA LIKE ILLNESS [None]
